FAERS Safety Report 5709028-2 (Version None)
Quarter: 2008Q2

REPORT INFORMATION
  Report Type: 
  Country: None (occurrence: None)
  Receive Date: 20080416
  Receipt Date: 20080416
  Transmission Date: 20081010
  Serious: Yes (Hospitalization)
  Sender: FDA-Public Use
  Company Number: None

PATIENT
  Age: 83 Year
  Sex: Male
  Weight: 59.51 kg

DRUGS (1)
  1. ENALAPRIL MALEATE [Suspect]
     Dosage: 5MG EVERY DAY PO
     Route: 048
     Dates: start: 20071022, end: 20071031

REACTIONS (3)
  - BLOOD CREATININE INCREASED [None]
  - BLOOD UREA INCREASED [None]
  - HYPERKALAEMIA [None]
